FAERS Safety Report 9828492 (Version 2)
Quarter: 2018Q1

REPORT INFORMATION
  Report Type: Spontaneous
  Country: GB (occurrence: GB)
  Receive Date: 20140117
  Receipt Date: 20180125
  Transmission Date: 20180509
  Serious: Yes (Hospitalization)
  Sender: FDA-Public Use
  Company Number: GB-ABBVIE-14P-167-1190940-00

PATIENT
  Age: 26 Year
  Sex: Female

DRUGS (2)
  1. LAMOTRIGINE. [Suspect]
     Active Substance: LAMOTRIGINE
     Indication: SEIZURE
     Dosage: TIME TO ONSET: 8 WEEK(S)
     Route: 065
  2. SODIUM VALPROATE [Suspect]
     Active Substance: VALPROATE SODIUM
     Indication: EPILEPSY
     Dosage: TIME TO ONSET: FEW YEAR(S)
     Route: 065

REACTIONS (11)
  - Toxic epidermal necrolysis [Recovering/Resolving]
  - Vulvovaginal inflammation [Recovered/Resolved]
  - Mucosal inflammation [Unknown]
  - Pyrexia [Recovered/Resolved]
  - Blister [Recovered/Resolved]
  - Stevens-Johnson syndrome [Recovering/Resolving]
  - Rash generalised [Recovered/Resolved]
  - Dermatitis bullous [Recovered/Resolved]
  - Stomatitis [Recovered/Resolved]
  - Epidermal necrosis [Recovered/Resolved]
  - Conjunctivitis [Unknown]
